FAERS Safety Report 12997665 (Version 1)
Quarter: 2016Q4

REPORT INFORMATION
  Report Type: Spontaneous
  Country: GB (occurrence: GB)
  Receive Date: 20161205
  Receipt Date: 20161205
  Transmission Date: 20170207
  Serious: Yes (Disabling)
  Sender: FDA-Public Use
  Company Number: GB-TEVA-715983ACC

PATIENT
  Age: 54 Year
  Sex: Male
  Weight: 92.07 kg

DRUGS (8)
  1. ARIPIPRAZOLE. [Suspect]
     Active Substance: ARIPIPRAZOLE
     Indication: CYCLOTHYMIC DISORDER
     Route: 048
  2. ATENOLOL. [Concomitant]
     Active Substance: ATENOLOL
  3. PREGABALIN. [Concomitant]
     Active Substance: PREGABALIN
  4. IBUPROFEN. [Concomitant]
     Active Substance: IBUPROFEN
  5. LANSOPRAZOL [Concomitant]
     Active Substance: LANSOPRAZOLE
  6. LOPERAMIDE [Concomitant]
     Active Substance: LOPERAMIDE
  7. ESCITALOPRAM [Concomitant]
     Active Substance: ESCITALOPRAM OXALATE
  8. PARACETAMOL [Concomitant]
     Active Substance: ACETAMINOPHEN

REACTIONS (4)
  - Gambling disorder [Unknown]
  - Depression [Unknown]
  - Anxiety [Unknown]
  - Emotional distress [Unknown]

NARRATIVE: CASE EVENT DATE: 20151221
